FAERS Safety Report 12708374 (Version 1)
Quarter: 2016Q3

REPORT INFORMATION
  Report Type: Spontaneous
  Country: US (occurrence: US)
  Receive Date: 20160901
  Receipt Date: 20160901
  Transmission Date: 20161109
  Serious: No
  Sender: FDA-Public Use
  Company Number: US-ENDO PHARMACEUTICALS INC.-2016-002445

PATIENT
  Sex: Female
  Weight: 81.72 kg

DRUGS (1)
  1. ISOSORBIDE MONONITRATE ER TABLETS 30MG [Suspect]
     Active Substance: ISOSORBIDE MONONITRATE
     Indication: OESOPHAGEAL SPASM
     Route: 048
     Dates: start: 2014, end: 201603

REACTIONS (3)
  - Dry mouth [Not Recovered/Not Resolved]
  - Off label use [Recovered/Resolved]
  - Dry eye [Recovering/Resolving]

NARRATIVE: CASE EVENT DATE: 2014
